FAERS Safety Report 7227177-7 (Version None)
Quarter: 2011Q1

REPORT INFORMATION
  Report Type: 
  Country: None (occurrence: None)
  Receive Date: 20110111
  Receipt Date: 20110111
  Transmission Date: 20110831
  Serious: Yes (Life-Threatening)
  Sender: FDA-Public Use
  Company Number: None

PATIENT
  Age: 87 Year
  Sex: Male

DRUGS (1)
  1. VANCOMYCIN [Suspect]
     Dosage: 1 GM EVERY DAY IV
     Route: 042
     Dates: start: 20101113, end: 20101114

REACTIONS (3)
  - DYSPNOEA [None]
  - THROMBOCYTOPENIA [None]
  - CONDITION AGGRAVATED [None]
